FAERS Safety Report 7437286-5 (Version None)
Quarter: 2011Q2

REPORT INFORMATION
  Report Type: 
  Country: None (occurrence: None)
  Receive Date: 20110426
  Receipt Date: 20110412
  Transmission Date: 20111010
  Serious: Yes (Hospitalization)
  Sender: FDA-Public Use
  Company Number: IT-CELGENEUS-083-C5013-07081921

PATIENT
  Sex: Female
  Weight: 50 kg

DRUGS (12)
  1. MELPHALAN [Suspect]
     Route: 048
     Dates: start: 20071026, end: 20071103
  2. PREDNISONE [Suspect]
     Route: 048
     Dates: start: 20071026, end: 20071103
  3. ASPIRIN [Concomitant]
     Indication: THROMBOSIS PROPHYLAXIS
     Dosage: 100 MILLIGRAM
     Route: 048
     Dates: start: 20070817, end: 20070831
  4. LENALIDOMIDE [Suspect]
     Dosage: 7.5 MILLIGRAM
     Route: 048
     Dates: start: 20070917, end: 20071001
  5. MELPHALAN [Suspect]
     Dosage: 8 MILLIGRAM
     Route: 048
     Dates: start: 20070917, end: 20071001
  6. LENALIDOMIDE [Suspect]
     Indication: MULTIPLE MYELOMA
     Dosage: 10 MILLIGRAM
     Route: 048
     Dates: start: 20070818, end: 20070831
  7. LENALIDOMIDE [Suspect]
     Route: 048
     Dates: start: 20071026, end: 20071103
  8. MELPHALAN [Suspect]
     Indication: MULTIPLE MYELOMA
     Dosage: 10 MILLIGRAM
     Route: 048
     Dates: start: 20070818, end: 20070820
  9. PREDNISONE [Suspect]
     Indication: MULTIPLE MYELOMA
     Dosage: 100 MILLIGRAM
     Route: 048
     Dates: start: 20070818, end: 20070820
  10. PREDNISONE [Suspect]
     Indication: IMMUNOSUPPRESSION
     Dosage: 50 MILLIGRAM
     Route: 048
     Dates: start: 20070831, end: 20070917
  11. PREDNISONE [Suspect]
     Indication: VASCULITIS
     Dosage: 25 MILLIGRAM
     Route: 048
     Dates: start: 20070917, end: 20071026
  12. OMEPRAZOLE [Concomitant]
     Indication: GASTRITIS PROPHYLAXIS
     Dosage: 20 MILLIGRAM
     Route: 048
     Dates: start: 20070803

REACTIONS (1)
  - VASCULITIS [None]
